FAERS Safety Report 10825790 (Version 3)
Quarter: 2015Q1

REPORT INFORMATION
  Report Type: Spontaneous
  Country: IT (occurrence: IT)
  Receive Date: 20150219
  Receipt Date: 20150324
  Transmission Date: 20150721
  Serious: Yes (Hospitalization)
  Sender: FDA-Public Use
  Company Number: IT-ROCHE-1540730

PATIENT
  Age: 49 Year
  Sex: Female

DRUGS (2)
  1. DISIPAL [Concomitant]
     Active Substance: ORPHENADRINE HYDROCHLORIDE
  2. RIVOTRIL [Suspect]
     Active Substance: CLONAZEPAM
     Indication: PARANOIA
     Route: 065

REACTIONS (3)
  - Language disorder [Recovered/Resolved]
  - Sopor [Recovered/Resolved]
  - Toxicity to various agents [Recovered/Resolved]

NARRATIVE: CASE EVENT DATE: 20130809
